FAERS Safety Report 6707119-0 (Version None)
Quarter: 2010Q2

REPORT INFORMATION
  Report Type: 
  Country: None (occurrence: None)
  Receive Date: 20100503
  Receipt Date: 20100426
  Transmission Date: 20101027
  Serious: Yes (Hospitalization)
  Sender: FDA-Public Use
  Company Number: B0650691A

PATIENT
  Sex: Female

DRUGS (1)
  1. AUGMENTIN '125' [Suspect]
     Indication: PNEUMONIA
     Dosage: 3U PER DAY
     Route: 048
     Dates: start: 20091108, end: 20091114

REACTIONS (3)
  - CHILLS [None]
  - HYPERVENTILATION [None]
  - VOMITING [None]
